FAERS Safety Report 9217464 (Version 2)
Quarter: 2013Q2

REPORT INFORMATION
  Report Type: Spontaneous
  Country: US (occurrence: US)
  Receive Date: 20130408
  Receipt Date: 20130416
  Transmission Date: 20140414
  Serious: No
  Sender: FDA-Public Use
  Company Number: US-009507513-1303USA009901

PATIENT
  Sex: Male

DRUGS (2)
  1. PEGINTRON [Suspect]
     Indication: CHRONIC HEPATITIS C
     Dosage: 120 MICROGRAM, QW
     Route: 058
  2. REBETOL [Suspect]
     Route: 048

REACTIONS (4)
  - Weight increased [Unknown]
  - Sinusitis [Unknown]
  - Device malfunction [Unknown]
  - Accidental exposure to product [Unknown]
